FAERS Safety Report 4751635-8 (Version None)
Quarter: 2005Q3

REPORT INFORMATION
  Report Type: 
  Country: None (occurrence: None)
  Receive Date: 20050824
  Receipt Date: 20050816
  Transmission Date: 20060218
  Serious: Yes (Death)
  Sender: FDA-Public Use
  Company Number: US-JNJFOC-20040306577

PATIENT
  Sex: Female
  Weight: 163.3 kg

DRUGS (11)
  1. DURAGESIC-100 [Suspect]
     Route: 062
     Dates: start: 20040113, end: 20040213
  2. DURAGESIC-100 [Suspect]
     Route: 062
     Dates: start: 20040113, end: 20040213
  3. ZANAFLEX [Concomitant]
  4. VICODIN ES [Concomitant]
  5. VICODIN ES [Concomitant]
  6. LIDODERM [Concomitant]
  7. NEURONTIN [Concomitant]
  8. PREMARIN [Concomitant]
  9. ZYRTEC [Concomitant]
  10. CETIRIZINE HCL [Concomitant]
  11. DYCYCLOMINE [Concomitant]

REACTIONS (19)
  - ABDOMINAL PAIN [None]
  - ANXIETY [None]
  - APPLICATION SITE REACTION [None]
  - BACK PAIN [None]
  - BALANCE DISORDER [None]
  - CARDIO-RESPIRATORY ARREST [None]
  - CONSTIPATION [None]
  - COUGH [None]
  - DIARRHOEA [None]
  - DIZZINESS [None]
  - FATIGUE [None]
  - FLANK PAIN [None]
  - FLATULENCE [None]
  - HYPERHIDROSIS [None]
  - MALAISE [None]
  - NAUSEA [None]
  - PAIN [None]
  - TEMPERATURE INTOLERANCE [None]
  - VOMITING [None]
